FAERS Safety Report 6796223-7 (Version None)
Quarter: 2010Q2

REPORT INFORMATION
  Report Type: 
  Country: None (occurrence: None)
  Receive Date: 20100624
  Receipt Date: 20100624
  Transmission Date: 20101027
  Serious: Yes (Hospitalization)
  Sender: FDA-Public Use
  Company Number: None

PATIENT
  Sex: Female
  Weight: 104.5 kg

DRUGS (1)
  1. METHYLPREDNISOLONE 1GM APP PHARMACEUTICALS, [Suspect]
     Indication: MULTIPLE SCLEROSIS
     Dosage: 500MG BID X5DAYS IV
     Route: 042
     Dates: start: 20100618, end: 20100618

REACTIONS (3)
  - DYSPNOEA [None]
  - HEART RATE INCREASED [None]
  - PARAESTHESIA [None]
